FAERS Safety Report 12677086 (Version 1)
Quarter: 2016Q3

REPORT INFORMATION
  Report Type: Spontaneous
  Country: US (occurrence: US)
  Receive Date: 20160823
  Receipt Date: 20160823
  Transmission Date: 20161109
  Serious: No
  Sender: FDA-Public Use
  Company Number: US-MYLANLABS-2016M1020706

PATIENT
  Age: 69 Year
  Sex: Female

DRUGS (1)
  1. CLONIDINE TRANSDERMAL SYSTEM [Suspect]
     Active Substance: CLONIDINE
     Indication: HYPERTENSION
     Dosage: 0.1 MG/ QD, QWK
     Route: 062
     Dates: start: 20160323

REACTIONS (3)
  - Application site rash [Not Recovered/Not Resolved]
  - Application site pain [Not Recovered/Not Resolved]
  - Application site papules [Not Recovered/Not Resolved]

NARRATIVE: CASE EVENT DATE: 201604
